FAERS Safety Report 8486453-0 (Version None)
Quarter: 2012Q3

REPORT INFORMATION
  Report Type: 
  Country: None (occurrence: None)
  Receive Date: 20120703
  Receipt Date: 20120702
  Transmission Date: 20120928
  Serious: Yes (Disabling, Other)
  Sender: FDA-Public Use
  Company Number: US-PFIZER INC-2012130757

PATIENT
  Sex: Female
  Weight: 79.365 kg

DRUGS (7)
  1. BYSTOLIC [Concomitant]
     Indication: BLOOD PRESSURE ABNORMAL
     Dosage: 5 MG, 2X/DAY
  2. LOSARTAN POTASSIUM [Suspect]
     Indication: BLOOD PRESSURE ABNORMAL
     Dosage: 100 MG, 3X/WEEK
     Dates: end: 20120501
  3. LOSARTAN POTASSIUM [Suspect]
     Dosage: 100 MG, DAILY
     Dates: start: 20120501
  4. CHANTIX [Suspect]
     Indication: SMOKING CESSATION THERAPY
     Dosage: 0.5 MG, DAILY
     Route: 048
  5. CHANTIX [Suspect]
     Dosage: UNK
     Route: 048
     Dates: end: 20120501
  6. CYMBALTA [Suspect]
     Indication: DEPRESSION
     Dosage: UNK
  7. XANAX [Suspect]
     Indication: ANXIETY
     Dosage: UNK
     Route: 048

REACTIONS (19)
  - PARANOIA [None]
  - RENAL FAILURE CHRONIC [None]
  - HYPERTENSION [None]
  - ABNORMAL BEHAVIOUR [None]
  - NERVOUSNESS [None]
  - DRUG EFFECT DECREASED [None]
  - HALLUCINATION [None]
  - AGGRESSION [None]
  - ANGER [None]
  - FEELING ABNORMAL [None]
  - FLAT AFFECT [None]
  - AMNESIA [None]
  - DYSSTASIA [None]
  - DELUSION [None]
  - PRESYNCOPE [None]
  - PANIC ATTACK [None]
  - AGITATION [None]
  - FEAR [None]
  - INSOMNIA [None]
